FAERS Safety Report 6503742-7 (Version None)
Quarter: 2009Q4

REPORT INFORMATION
  Report Type: 
  Country: None (occurrence: None)
  Receive Date: 20091217
  Receipt Date: 20091208
  Transmission Date: 20100525
  Serious: Yes (Other)
  Sender: FDA-Public Use
  Company Number: FR-ROCHE-673384

PATIENT
  Sex: Male

DRUGS (3)
  1. PEG-INTERFERON ALFA 2A (RO 25-8310) [Suspect]
     Indication: ANAEMIA OF CHRONIC DISEASE
     Dosage: LAST DOSE PRIOR TO SAE:31 AUGUST 2009, FORM: 180 UG/0.5 ML
     Route: 058
     Dates: start: 20081215
  2. EPOETIN BETA [Suspect]
     Indication: ANAEMIA OF CHRONIC DISEASE
     Dosage: LAST DOSE PRIOR TO SAE: 03 SEP 2009, DOSE:30000 UI
     Route: 058
     Dates: start: 20090624
  3. RIBAVIRIN [Suspect]
     Indication: ANAEMIA OF CHRONIC DISEASE
     Dosage: LAST DOSE PRIOR TO SAE: 07 SEP 2009
     Route: 048
     Dates: start: 20081215

REACTIONS (1)
  - ANTI-ERYTHROPOIETIN ANTIBODY [None]
